FAERS Safety Report 8366715-8 (Version None)
Quarter: 2012Q2

REPORT INFORMATION
  Report Type: 
  Country: None (occurrence: None)
  Receive Date: 20120516
  Receipt Date: 20120516
  Transmission Date: 20120825
  Serious: Yes (Life-Threatening)
  Sender: FDA-Public Use
  Company Number: None

PATIENT
  Age: 27 Year
  Sex: Female
  Weight: 45 kg

DRUGS (4)
  1. ROMIPLOSTIM [Suspect]
     Indication: THROMBOCYTOPENIA
     Dosage: ADVANCES DOSES, WEEKLY, SC INJECTION
     Route: 058
     Dates: start: 20111110
  2. ROMIPLOSTIM [Suspect]
     Indication: THROMBOCYTOPENIA
     Dosage: ADVANCES DOSES, WEEKLY, SC INJECTION
     Route: 058
     Dates: start: 20111027
  3. ROMIPLOSTIM [Suspect]
     Indication: THROMBOCYTOPENIA
     Dosage: ADVANCES DOSES, WEEKLY, SC INJECTION
     Route: 058
     Dates: start: 20111117
  4. ROMIPLOSTIM [Suspect]
     Indication: THROMBOCYTOPENIA
     Dosage: ADVANCES DOSES, WEEKLY, SC INJECTION
     Route: 058
     Dates: start: 20111103

REACTIONS (4)
  - PATHOGEN RESISTANCE [None]
  - PULMONARY ALVEOLAR HAEMORRHAGE [None]
  - BACTERAEMIA [None]
  - SEPTIC SHOCK [None]
